FAERS Safety Report 25009367 (Version 1)
Quarter: 2025Q1

REPORT INFORMATION
  Report Type: Spontaneous
  Country: US (occurrence: US)
  Receive Date: 20250225
  Receipt Date: 20250225
  Transmission Date: 20250409
  Serious: No
  Sender: PFIZER
  Company Number: US-PFIZER INC-202400298727

PATIENT
  Age: 64 Year
  Sex: Female

DRUGS (3)
  1. TUKYSA [Suspect]
     Active Substance: TUCATINIB
     Indication: Breast cancer female
     Dosage: TAKE 2 150MG TABLETS TWICE DAILY
     Route: 048
  2. CAPECITABINE [Concomitant]
     Active Substance: CAPECITABINE
     Indication: Breast cancer female
  3. LYNPARZA [Concomitant]
     Active Substance: OLAPARIB
     Indication: Breast cancer female

REACTIONS (3)
  - Neoplasm progression [Unknown]
  - Off label use [Unknown]
  - Product use issue [Unknown]
